FAERS Safety Report 20589859 (Version 1)
Quarter: 2022Q1

REPORT INFORMATION
  Report Type: Spontaneous
  Country: GB (occurrence: GB)
  Receive Date: 20220314
  Receipt Date: 20220314
  Transmission Date: 20220423
  Serious: Yes (Other)
  Sender: FDA-Public Use
  Company Number: None

PATIENT
  Age: 27 Year
  Sex: Female
  Weight: 53 kg

DRUGS (4)
  1. PROPRANOLOL [Suspect]
     Active Substance: PROPRANOLOL HYDROCHLORIDE
     Indication: Anxiety disorder
     Dosage: UP TO THREE TIMES DAILY
     Dates: start: 20220124, end: 20220228
  2. CITALOPRAM [Concomitant]
     Active Substance: CITALOPRAM HYDROBROMIDE
     Indication: Anxiety disorder
     Dosage: 1 DOSAGE FORMS DAILY; ONE TO BE TAKEN EACH DAY (TOTAL 30MG)
     Dates: start: 20220124
  3. COMIRNATY [Concomitant]
     Active Substance: TOZINAMERAN
     Dosage: 0.3 ML INTRAMUSCULAR
     Dates: start: 20211222, end: 20211222
  4. PROPRANOLOL [Concomitant]
     Active Substance: PROPRANOLOL HYDROCHLORIDE
     Indication: Anxiety disorder
     Dosage: UP TO THREE TIMES DAILY
     Dates: start: 20220124, end: 20220228

REACTIONS (2)
  - Nightmare [Unknown]
  - Hallucination, visual [Unknown]
